FAERS Safety Report 6321380-6 (Version None)
Quarter: 2009Q3

REPORT INFORMATION
  Report Type: 
  Country: None (occurrence: None)
  Receive Date: 20090822
  Receipt Date: 20090119
  Transmission Date: 20100115
  Serious: No
  Sender: FDA-Public Use
  Company Number: US-ABBOTT-09P-163-0498751-00

PATIENT
  Sex: Female
  Weight: 90.8 kg

DRUGS (10)
  1. NIASPAN [Suspect]
     Indication: HIGH DENSITY LIPOPROTEIN DECREASED
     Route: 048
  2. ASPIRIN [Concomitant]
     Indication: DRUG USE FOR UNKNOWN INDICATION
     Route: 048
     Dates: start: 20090112
  3. LEVOTHYROXINE [Concomitant]
     Indication: HYPOTHYROIDISM
     Route: 048
     Dates: start: 20030101
  4. PRILOSEC [Concomitant]
     Indication: HIATUS HERNIA
     Dosage: UNSURE OF STRENGTH
     Route: 048
  5. PRILOSEC [Concomitant]
     Indication: DYSPEPSIA
  6. LIPITOR [Concomitant]
     Indication: BLOOD CHOLESTEROL INCREASED
     Route: 048
  7. TRIAMTERENE AND HYDROCHLOROTHIAZIDE [Concomitant]
     Indication: OEDEMA PERIPHERAL
     Dosage: 37.5/25
     Route: 048
  8. KLOR-CON [Concomitant]
     Indication: PROPHYLAXIS
     Route: 048
  9. FUROSEMIDE [Concomitant]
     Indication: OEDEMA PERIPHERAL
     Route: 048
  10. ALEVE [Concomitant]
     Indication: ARTHRALGIA
     Route: 048

REACTIONS (1)
  - CHILLS [None]
